FAERS Safety Report 6303160-0 (Version None)
Quarter: 2009Q3

REPORT INFORMATION
  Report Type: 
  Country: None (occurrence: None)
  Receive Date: 20090810
  Receipt Date: 20090302
  Transmission Date: 20100115
  Serious: No
  Sender: FDA-Public Use
  Company Number: A0771143A

PATIENT
  Age: 34 Year
  Sex: Female

DRUGS (3)
  1. PAROXETINE HCL [Suspect]
     Indication: DEPRESSION
     Dosage: 12.5MG PER DAY
     Route: 048
     Dates: start: 20080901
  2. KLONOPIN [Concomitant]
  3. M.V.I. [Concomitant]

REACTIONS (9)
  - ABNORMAL BEHAVIOUR [None]
  - CHILLS [None]
  - CRYING [None]
  - DIZZINESS [None]
  - FEELING ABNORMAL [None]
  - GAIT DISTURBANCE [None]
  - PYREXIA [None]
  - VOMITING [None]
  - WEIGHT INCREASED [None]
